FAERS Safety Report 12816723 (Version 1)
Quarter: 2016Q4

REPORT INFORMATION
  Report Type: Spontaneous
  Country: US (occurrence: US)
  Receive Date: 20161006
  Receipt Date: 20161006
  Transmission Date: 20170207
  Serious: No
  Sender: FDA-Public Use
  Company Number: US-NOVEN PHARMACEUTICALS, INC.-US2016001277

PATIENT

DRUGS (4)
  1. VIVELLE-DOT [Concomitant]
     Active Substance: ESTRADIOL
     Dosage: 2 WEEKS OF THERAPY IN A MONTH
  2. VAGIFEM [Concomitant]
     Active Substance: ESTRADIOL
     Dosage: AFTER EVERY TWO DAYS
  3. COMBIPATCH [Suspect]
     Active Substance: ESTRADIOL\NORETHINDRONE ACETATE
     Indication: HOT FLUSH
     Dosage: 0.05/0.25MG, 2 WEEKS OF THERAPY IN A MONTH
     Route: 062
     Dates: end: 20160520
  4. COMBIPATCH [Suspect]
     Active Substance: ESTRADIOL\NORETHINDRONE ACETATE
     Indication: NIGHT SWEATS
     Dosage: 50/140MG, 2 WEEKS OF THERAPY IN A MONTH
     Route: 062
     Dates: start: 20160521

REACTIONS (3)
  - Incorrect dose administered [Unknown]
  - Vaginal haemorrhage [Unknown]
  - Drug ineffective [Unknown]

NARRATIVE: CASE EVENT DATE: 201605
